FAERS Safety Report 7609252-8 (Version None)
Quarter: 2011Q3

REPORT INFORMATION
  Report Type: 
  Country: None (occurrence: None)
  Receive Date: 20110714
  Receipt Date: 20110707
  Transmission Date: 20111222
  Serious: Yes (Other)
  Sender: FDA-Public Use
  Company Number: CA-ELI_LILLY_AND_COMPANY-CA201105007581

PATIENT
  Age: 82 Year
  Sex: Male
  Weight: 82 kg

DRUGS (4)
  1. TERAZOSIN HCL [Concomitant]
     Indication: BLOOD PRESSURE
     Dosage: 2 MG, UNK
  2. PERINDOPRIL ERBUMINE [Concomitant]
  3. INDAPAMIDE [Concomitant]
  4. CIALIS [Suspect]
     Indication: ERECTILE DYSFUNCTION
     Dosage: 20 MG, PRN
     Route: 048
     Dates: start: 20110506

REACTIONS (4)
  - VISION BLURRED [None]
  - CYANOPSIA [None]
  - HEADACHE [None]
  - MYCOBACTERIUM AVIUM COMPLEX INFECTION [None]
